FAERS Safety Report 6249242-3 (Version None)
Quarter: 2009Q2

REPORT INFORMATION
  Report Type: 
  Country: None (occurrence: None)
  Receive Date: 20090629
  Receipt Date: 20090617
  Transmission Date: 20091009
  Serious: Yes (Hospitalization, Other)
  Sender: FDA-Public Use
  Company Number: US-MERCK-0708USA00294

PATIENT
  Age: 47 Year
  Sex: Female

DRUGS (1)
  1. FOSAMAX [Suspect]
     Indication: RESORPTION BONE INCREASED
     Route: 048
     Dates: start: 19950101, end: 20050101

REACTIONS (14)
  - ANAEMIA [None]
  - CARDIOVASCULAR DISORDER [None]
  - DEPRESSION [None]
  - HYPERTENSION [None]
  - INADEQUATE DIET [None]
  - LUPUS NEPHRITIS [None]
  - OSTEONECROSIS [None]
  - PRODUCTIVE COUGH [None]
  - PYELONEPHRITIS [None]
  - RESORPTION BONE INCREASED [None]
  - SYSTEMIC LUPUS ERYTHEMATOSUS [None]
  - TEMPOROMANDIBULAR JOINT SYNDROME [None]
  - TOOTH ABSCESS [None]
  - URINARY TRACT INFECTION [None]
